FAERS Safety Report 5672065-0 (Version None)
Quarter: 2008Q2

REPORT INFORMATION
  Report Type: 
  Country: None (occurrence: None)
  Receive Date: 20080219
  Receipt Date: 20071228
  Transmission Date: 20081010
  Serious: No
  Sender: FDA-Public Use
  Company Number: TPA2008A00002

PATIENT
  Age: 87 Year
  Sex: Female
  Weight: 43.5453 kg

DRUGS (9)
  1. ROZEREM [Suspect]
     Indication: INSOMNIA
     Dosage: 8 MG, AS REQUIRED, PER ORAL ; 8 MG, AS REQUIRED, PER ORAL ; 8 MG, AS REQUIRED, PER ORAL
     Route: 048
     Dates: start: 20071211, end: 20071218
  2. ROZEREM [Suspect]
     Indication: INSOMNIA
     Dosage: 8 MG, AS REQUIRED, PER ORAL ; 8 MG, AS REQUIRED, PER ORAL ; 8 MG, AS REQUIRED, PER ORAL
     Route: 048
     Dates: start: 20071221
  3. AMBIEN [Suspect]
     Indication: INSOMNIA
     Dosage: 5 MG, QHS, PER ORAL ; 2.5 MG OR 5 MG, AS REQUIRED, PER ORAL
     Dates: start: 20071211, end: 20071218
  4. AMBIEN [Suspect]
     Indication: INSOMNIA
     Dosage: 5 MG, QHS, PER ORAL ; 2.5 MG OR 5 MG, AS REQUIRED, PER ORAL
     Dates: start: 20071218
  5. LIPITOR [Concomitant]
  6. LEVOTHYROXINE SODIUM [Concomitant]
  7. FOSAMAX [Concomitant]
  8. TOPROL XL (METOPROLOL SUCCUINATE) [Concomitant]
  9. ASPIRIN [Concomitant]

REACTIONS (2)
  - INITIAL INSOMNIA [None]
  - MIDDLE INSOMNIA [None]
